FAERS Safety Report 6495255-6 (Version None)
Quarter: 2009Q4

REPORT INFORMATION
  Report Type: 
  Country: None (occurrence: None)
  Receive Date: 20091214
  Receipt Date: 20091202
  Transmission Date: 20100525
  Serious: Yes (Death, Hospitalization, Other)
  Sender: FDA-Public Use
  Company Number: CR-PFIZER INC-2009305224

PATIENT

DRUGS (1)
  1. CHAMPIX [Suspect]

REACTIONS (3)
  - DIABETIC FOOT INFECTION [None]
  - MULTI-ORGAN FAILURE [None]
  - SEPTIC SHOCK [None]
